FAERS Safety Report 8048855-6 (Version None)
Quarter: 2012Q1

REPORT INFORMATION
  Report Type: 
  Country: None (occurrence: None)
  Receive Date: 20120117
  Receipt Date: 20120106
  Transmission Date: 20120608
  Serious: Yes (Hospitalization, Other)
  Sender: FDA-Public Use
  Company Number: US-BAXTER-2011BH040479

PATIENT
  Age: 84 Year
  Sex: Female
  Weight: 66 kg

DRUGS (2)
  1. EXTRANEAL [Suspect]
     Indication: PERITONEAL DIALYSIS
     Route: 033
     Dates: start: 20101012, end: 20110101
  2. NOVOLOG [Concomitant]
     Indication: PRODUCT USED FOR UNKNOWN INDICATION
     Route: 065

REACTIONS (7)
  - FEELING HOT [None]
  - COLD SWEAT [None]
  - MUSCLE SPASMS [None]
  - DEVICE INTERACTION [None]
  - LETHARGY [None]
  - HYPOGLYCAEMIA [None]
  - SPEECH DISORDER [None]
